FAERS Safety Report 7998040 (Version 4)
Quarter: 2013Q2

REPORT INFORMATION
  Report Type: Spontaneous
  Country: US (occurrence: US)
  Receive Date: 20110620
  Receipt Date: 20130410
  Transmission Date: 20140414
  Serious: Yes (Other)
  Sender: FDA-Public Use
  Company Number: US-B.I. PHARMACEUTICALS,INC./RIDGEFIELD-2011-BP-14812BP

PATIENT
  Age: 70 Year
  Sex: Female

DRUGS (21)
  1. SPIRIVA [Suspect]
     Indication: CHRONIC OBSTRUCTIVE PULMONARY DISEASE
     Dosage: 18 MCG
     Route: 055
     Dates: start: 2009, end: 20110527
  2. SPIRIVA [Suspect]
     Indication: ASTHMA
     Dosage: 18 MCG
     Route: 055
     Dates: start: 2007, end: 20120828
  3. COMBIVENT [Suspect]
     Indication: CHRONIC OBSTRUCTIVE PULMONARY DISEASE
     Route: 055
     Dates: start: 2007
  4. COMBIVENT [Suspect]
     Indication: ASTHMA
  5. NITROGLYCERIN [Concomitant]
     Indication: PROPHYLAXIS
     Dates: start: 2010
  6. AVAPRO [Concomitant]
     Indication: HYPERTENSION
     Route: 048
     Dates: start: 1992
  7. AMLODIPINE [Concomitant]
     Indication: HYPERTENSION
     Dates: start: 201101
  8. HYDROCHLOROTHIAZIDE [Concomitant]
     Indication: OEDEMA PERIPHERAL
     Dosage: 25 MG
     Route: 048
     Dates: start: 2010
  9. HYDROCHLOROTHIAZIDE [Concomitant]
     Indication: DIURETIC THERAPY
  10. METOPROLOL SUCC ER [Concomitant]
     Indication: HYPERTENSION
     Dosage: 50 MG
     Route: 048
     Dates: start: 2006
  11. METOPROLOL SUCC ER [Concomitant]
     Indication: CARDIAC DISORDER
  12. FUROSEMIDE [Concomitant]
     Indication: OEDEMA PERIPHERAL
     Dates: start: 2010
  13. PROTONIX [Concomitant]
     Indication: ULCER HAEMORRHAGE
     Dates: start: 2010
  14. ALENDRONATE SODIUM [Concomitant]
     Indication: OSTEOPOROSIS
     Route: 048
     Dates: start: 1997
  15. ALENDRONATE SODIUM [Concomitant]
     Indication: BONE DISORDER
  16. SIMVASTATIN [Concomitant]
     Indication: BLOOD CHOLESTEROL INCREASED
     Dates: start: 2005
  17. ASPIRIN [Concomitant]
     Indication: MYOCARDIAL INFARCTION
     Dosage: 325 MG
     Route: 048
     Dates: start: 2005
  18. VITAMIN D3 [Concomitant]
     Indication: FATIGUE
     Dates: start: 201101
  19. NEBULIZER [Concomitant]
     Indication: DYSPNOEA
     Route: 055
  20. NITRO STAT [Concomitant]
     Indication: CHEST PAIN
     Dates: start: 2006
  21. ANASTROZOLE [Concomitant]
     Indication: BREAST CANCER
     Dosage: 1 MG
     Route: 048
     Dates: start: 201204

REACTIONS (8)
  - Breast cancer [Not Recovered/Not Resolved]
  - Dyspnoea [Not Recovered/Not Resolved]
  - Ulcer haemorrhage [Not Recovered/Not Resolved]
  - Blood cholesterol increased [Not Recovered/Not Resolved]
  - Hypersensitivity [Not Recovered/Not Resolved]
  - Dyspnoea [Not Recovered/Not Resolved]
  - Product quality issue [Recovered/Resolved]
  - Product quality issue [Recovered/Resolved]
